FAERS Safety Report 9358008 (Version 4)
Quarter: 2016Q1

REPORT INFORMATION
  Report Type: Spontaneous
  Country: US (occurrence: US)
  Receive Date: 20130620
  Receipt Date: 20160118
  Transmission Date: 20160526
  Serious: Yes (Hospitalization, Other)
  Sender: FDA-Public Use
  Company Number: US-COVIDIEN/TYCO HEALTHCARE/MALLINCKRODT-T201303332

PATIENT
  Age: 60 Year
  Sex: Female

DRUGS (2)
  1. GABLOFEN [Suspect]
     Active Substance: BACLOFEN
     Indication: MUSCLE SPASTICITY
     Dosage: 180 MCG/DAY
     Route: 037
     Dates: end: 2013
  2. OMNIPAQUE [Suspect]
     Active Substance: IOHEXOL
     Indication: X-RAY
     Dosage: 8 CC
     Route: 037

REACTIONS (15)
  - Overdose [Recovered/Resolved]
  - Malaise [Unknown]
  - Asthenia [Unknown]
  - Anxiety [Not Recovered/Not Resolved]
  - Gastritis [Unknown]
  - Palpitations [Unknown]
  - Flushing [Recovered/Resolved]
  - Sleep disorder [Not Recovered/Not Resolved]
  - Burning sensation [Recovered/Resolved]
  - Device failure [Unknown]
  - Chest pain [Unknown]
  - Cardiac arrest [Recovered/Resolved]
  - Drug withdrawal syndrome [Unknown]
  - Feeling abnormal [Recovered/Resolved]
  - Incorrect dose administered by device [Recovered/Resolved]

NARRATIVE: CASE EVENT DATE: 2012
